FAERS Safety Report 5822001-9 (Version None)
Quarter: 2008Q3

REPORT INFORMATION
  Report Type: 
  Country: None (occurrence: None)
  Receive Date: 20080724
  Receipt Date: 20080717
  Transmission Date: 20090109
  Serious: Yes (Hospitalization)
  Sender: FDA-Public Use
  Company Number: US-MERCK-0705USA04115

PATIENT
  Age: 82 Year
  Sex: Male
  Weight: 75 kg

DRUGS (5)
  1. FOSAMAX [Suspect]
     Indication: OSTEOPOROSIS
     Route: 048
     Dates: start: 20030114, end: 20070201
  2. FOSAMAX [Suspect]
     Route: 048
     Dates: start: 19981201
  3. FOSAMAX [Suspect]
     Route: 048
  4. [THERAPY UNSPECIFIED] [Concomitant]
     Indication: HYPERTENSION
     Route: 065
     Dates: start: 20020101
  5. [THERAPY UNSPECIFIED] [Concomitant]
     Indication: BLOOD CHOLESTEROL INCREASED
     Route: 065
     Dates: start: 20020101

REACTIONS (23)
  - ABSCESS [None]
  - ACQUIRED DIAPHRAGMATIC EVENTRATION [None]
  - AORTIC ANEURYSM [None]
  - ATRIOVENTRICULAR BLOCK FIRST DEGREE [None]
  - BACK PAIN [None]
  - CELLULITIS [None]
  - DENTAL CARIES [None]
  - EXCORIATION [None]
  - FALL [None]
  - GAIT DISTURBANCE [None]
  - INGUINAL HERNIA [None]
  - JAW DISORDER [None]
  - KYPHOSCOLIOSIS [None]
  - LIMB INJURY [None]
  - NEPHROGENIC ANAEMIA [None]
  - NEPHROSCLEROSIS [None]
  - ORAL DISORDER [None]
  - PAIN IN JAW [None]
  - PLEURAL EFFUSION [None]
  - RENAL ARTERIOSCLEROSIS [None]
  - RESTRICTIVE PULMONARY DISEASE [None]
  - SWELLING [None]
  - TOOTH LOSS [None]
